FAERS Safety Report 10753507 (Version 1)
Quarter: 2015Q1

REPORT INFORMATION
  Report Type: Spontaneous
  Country: IN (occurrence: None)
  Receive Date: 20150129
  Receipt Date: 20150129
  Transmission Date: 20150721
  Serious: Yes (Other)
  Sender: FDA-Public Use
  Company Number: IN-2015VAL000086

PATIENT
  Age: 35 Year
  Sex: Female

DRUGS (6)
  1. ROPIVACAINE HYDROCHLORIDE. [Suspect]
     Active Substance: ROPIVACAINE HYDROCHLORIDE
     Indication: PRODUCT USED FOR UNKNOWN INDICATION
  2. METOPROLOL TARTRATE (METOPROLOL TARTRATE) UNKNOWN [Suspect]
     Active Substance: METOPROLOL TARTRATE
     Indication: HYPERTENSION
     Dosage: EXTENDED RELEASE
  3. METHYLDOPA (METHYLDOPA) [Suspect]
     Active Substance: METHYLDOPA
     Indication: HYPERTENSION
  4. EPHEDRINE [Suspect]
     Active Substance: EPHEDRINE
     Indication: PRODUCT USED FOR UNKNOWN INDICATION
     Dosage: BOLUS
  5. AMLODIPINE [Suspect]
     Active Substance: AMLODIPINE BESYLATE
     Indication: HYPERTENSION
  6. LIGNOCAINE /00033401/ [Suspect]
     Active Substance: LIDOCAINE HYDROCHLORIDE
     Indication: PRODUCT USED FOR UNKNOWN INDICATION

REACTIONS (8)
  - Premature delivery [None]
  - Blood pressure increased [None]
  - Subclavian artery stenosis [None]
  - Headache [None]
  - Maternal exposure during pregnancy [None]
  - Caesarean section [None]
  - Aortic stenosis [None]
  - Cardiac murmur [None]
